FAERS Safety Report 15591858 (Version 1)
Quarter: 2018Q4

REPORT INFORMATION
  Report Type: Spontaneous
  Country: US (occurrence: US)
  Receive Date: 20181106
  Receipt Date: 20181106
  Transmission Date: 20190205
  Serious: No
  Sender: FDA-Public Use
  Company Number: US-PERRIGO-18US011879

PATIENT
  Age: 41 Year
  Sex: Female
  Weight: 51.7 kg

DRUGS (3)
  1. OTHER VITAMIN PRODUCTS, COMBINATIONS [Concomitant]
     Indication: SUPPLEMENTATION THERAPY
     Dosage: UNK
     Route: 048
  2. ESTRADIOL. [Suspect]
     Active Substance: ESTRADIOL
     Indication: BLOOD OESTROGEN DECREASED
     Dosage: 2 G, QD AT NIGHT
     Route: 067
     Dates: start: 20181008, end: 20181012
  3. CLARITIN [Concomitant]
     Active Substance: LORATADINE
     Indication: HYPERSENSITIVITY
     Dosage: UNK
     Route: 048

REACTIONS (5)
  - Depression [Recovered/Resolved]
  - Night sweats [Recovered/Resolved]
  - Off label use [Recovered/Resolved with Sequelae]
  - Insomnia [Recovered/Resolved]
  - Hypoaesthesia oral [Recovered/Resolved]

NARRATIVE: CASE EVENT DATE: 20080808
